FAERS Safety Report 13258269 (Version 1)
Quarter: 2017Q1

REPORT INFORMATION
  Report Type: Spontaneous
  Country: US (occurrence: US)
  Receive Date: 20170221
  Receipt Date: 20170221
  Transmission Date: 20170428
  Serious: Yes (Death, Hospitalization)
  Sender: FDA-Public Use
  Company Number: US-IMPAX LABORATORIES, INC-2017-IPXL-00351

PATIENT
  Age: 15 Year
  Sex: Female

DRUGS (1)
  1. CHLOROQUINE PHOSPHATE. [Suspect]
     Active Substance: CHLOROQUINE PHOSPHATE
     Indication: SUICIDE ATTEMPT
     Dosage: UNK
     Route: 065

REACTIONS (7)
  - Coma [Unknown]
  - Completed suicide [Fatal]
  - Lethargy [Unknown]
  - Hypokalaemia [Unknown]
  - Intentional overdose [Fatal]
  - Vomiting [Unknown]
  - Cardiac arrest [Fatal]
